FAERS Safety Report 7158934-3 (Version None)
Quarter: 2010Q4

REPORT INFORMATION
  Report Type: 
  Country: None (occurrence: None)
  Receive Date: 20101214
  Receipt Date: 20101203
  Transmission Date: 20110411
  Serious: Yes (Hospitalization)
  Sender: FDA-Public Use
  Company Number: PHHO2010US18829

PATIENT
  Sex: Female

DRUGS (5)
  1. CERTICAN [Suspect]
     Indication: TRANSPLANT
     Dosage: 2 MG, BID
     Route: 048
     Dates: start: 20051010
  2. BETA BLOCKING AGENTS [Concomitant]
  3. LIPITOR [Concomitant]
  4. ACE INHIBITOR NOS [Concomitant]
  5. ASPIRIN [Concomitant]

REACTIONS (4)
  - CORONARY ARTERY BYPASS [None]
  - CORONARY ARTERY DISEASE [None]
  - CORONARY ARTERY THROMBOSIS [None]
  - MYOCARDIAL INFARCTION [None]
